FAERS Safety Report 11740211 (Version 2)
Quarter: 2015Q4

REPORT INFORMATION
  Report Type: Spontaneous
  Country: US (occurrence: US)
  Receive Date: 20151110
  Receipt Date: 20151120
  Transmission Date: 20160304
  Serious: No
  Sender: FDA-Public Use
  Company Number: US-ELI_LILLY_AND_COMPANY-US201204003553

PATIENT
  Sex: Female

DRUGS (2)
  1. FORTEO [Suspect]
     Active Substance: TERIPARATIDE
  2. FORTEO [Suspect]
     Active Substance: TERIPARATIDE
     Indication: OSTEOPOROSIS POSTMENOPAUSAL
     Dosage: UNK UNK, QD

REACTIONS (12)
  - Herpes zoster [Unknown]
  - Muscle spasms [Recovered/Resolved]
  - Cystitis [Unknown]
  - Fall [Unknown]
  - Asthenia [Recovered/Resolved]
  - Musculoskeletal disorder [Unknown]
  - Feeling abnormal [Recovered/Resolved]
  - Diverticulitis [Unknown]
  - Pruritus [Recovered/Resolved]
  - Ligament sprain [Unknown]
  - Infection parasitic [Unknown]
  - Sinusitis [Unknown]
